FAERS Safety Report 25054837 (Version 1)
Quarter: 2025Q1

REPORT INFORMATION
  Report Type: Spontaneous
  Country: US (occurrence: US)
  Receive Date: 20250308
  Receipt Date: 20250308
  Transmission Date: 20250408
  Serious: Yes (Hospitalization, Other)
  Sender: COSETTE PHARMACEUTICALS INC
  Company Number: US-COSETTE-CP2025US000235

PATIENT
  Age: 58 Year
  Sex: Female

DRUGS (1)
  1. ACETAMINOPHEN [Suspect]
     Active Substance: ACETAMINOPHEN
     Indication: Product used for unknown indication
     Route: 065

REACTIONS (11)
  - Acute myocardial infarction [Unknown]
  - Acute respiratory failure [Unknown]
  - Autoimmune hepatitis [Unknown]
  - Chronic hepatic failure [Unknown]
  - Transaminases increased [Unknown]
  - Anaemia [Unknown]
  - Abdominal pain [Unknown]
  - Asthenia [Unknown]
  - Jaundice [Unknown]
  - Toxicity to various agents [Unknown]
  - Overdose [Unknown]
